FAERS Safety Report 15868654 (Version 1)
Quarter: 2019Q1

REPORT INFORMATION
  Report Type: Report from Study
  Country: US (occurrence: US)
  Receive Date: 20190125
  Receipt Date: 20190125
  Transmission Date: 20190417
  Serious: Yes (Hospitalization, Other)
  Sender: FDA-Public Use
  Company Number: US-NOVOPROD-641131

PATIENT
  Age: 63 Year
  Sex: Female
  Weight: 112 kg

DRUGS (4)
  1. LEVOTHYROXINE. [Concomitant]
     Active Substance: LEVOTHYROXINE
     Indication: HYPOTHYROIDISM
     Dosage: 75.0,MG,
     Dates: start: 20170504
  2. XELJANZ [Concomitant]
     Active Substance: TOFACITINIB CITRATE
     Indication: RHEUMATOID ARTHRITIS
     Dosage: 10.0,MG,
     Dates: start: 2013
  3. SEMAGLUTIDE B 1.0 MG/ML PDS290 [Suspect]
     Active Substance: SEMAGLUTIDE
     Indication: OBESITY
     Dosage: 0.25 MG, QW
     Route: 058
     Dates: start: 20180831, end: 20181224
  4. VALTREX [Concomitant]
     Active Substance: VALACYCLOVIR HYDROCHLORIDE
     Indication: HERPES ZOSTER
     Dosage: 1.0,G,
     Dates: start: 2006

REACTIONS (2)
  - Cholelithiasis [Recovered/Resolved]
  - Cholecystitis acute [Recovered/Resolved]

NARRATIVE: CASE EVENT DATE: 20181224
